FAERS Safety Report 8033040-4 (Version None)
Quarter: 2012Q1

REPORT INFORMATION
  Report Type: 
  Country: None (occurrence: None)
  Receive Date: 20120110
  Receipt Date: 20120106
  Transmission Date: 20120608
  Serious: Yes (Other)
  Sender: FDA-Public Use
  Company Number: JP-PFIZER INC-2011310864

PATIENT
  Age: 33 Year
  Sex: Female

DRUGS (1)
  1. CORTRIL [Suspect]
     Indication: HYPOPITUITARISM
     Dosage: 2 OR 3 TABLETS OF 10 MG, DAILY
     Route: 048

REACTIONS (1)
  - UVEITIS [None]
